FAERS Safety Report 8851238 (Version 2)
Quarter: 2012Q4

REPORT INFORMATION
  Report Type: 
  Country: FR (occurrence: FR)
  Receive Date: 20121019
  Receipt Date: 20121106
  Transmission Date: 20130627
  Serious: Yes (Other)
  Sender: FDA-Public Use
  Company Number: FR-BAYER-2012-106665

PATIENT
  Age: 25 Year
  Sex: Female
  Weight: 60 kg

DRUGS (2)
  1. YAZ [Suspect]
     Dosage: 1 DF, QD
     Route: 048
     Dates: start: 201111, end: 20121001
  2. JASMINE [Suspect]
     Dosage: 1 DF, QD
     Route: 048
     Dates: start: 2008, end: 201110

REACTIONS (4)
  - Haemorrhagic anaemia [Recovering/Resolving]
  - Uterine haemorrhage [Recovering/Resolving]
  - Iron deficiency anaemia [None]
  - Menometrorrhagia [None]
